FAERS Safety Report 6474136-8 (Version None)
Quarter: 2009Q4

REPORT INFORMATION
  Report Type: 
  Country: None (occurrence: None)
  Receive Date: 20091204
  Receipt Date: 20091130
  Transmission Date: 20100525
  Serious: Yes (Hospitalization)
  Sender: FDA-Public Use
  Company Number: JP-BRISTOL-MYERS SQUIBB COMPANY-14876320

PATIENT
  Age: 73 Year
  Sex: Male
  Weight: 51 kg

DRUGS (6)
  1. CARBOPLATIN [Suspect]
     Indication: NON-SMALL CELL LUNG CANCER
     Dosage: PERMANENTLY WITHDRAWN ON 08-SEP-2009
     Route: 042
     Dates: start: 20090810, end: 20090810
  2. PACLITAXEL [Suspect]
     Indication: NON-SMALL CELL LUNG CANCER
     Dosage: PERMANENTLY WITHDRAWN ON 08-SEP-2009
     Route: 042
     Dates: start: 20090810, end: 20090810
  3. CP-751,871 [Suspect]
     Indication: NON-SMALL CELL LUNG CANCER
     Dosage: PERMANENTLY WITHDRAWN ON 08-SEP-2009
     Route: 042
     Dates: start: 20090810, end: 20090810
  4. PURSENNID [Concomitant]
     Dosage: TABS
     Dates: start: 20090709
  5. MYSLEE [Concomitant]
     Dates: start: 20090814, end: 20091027
  6. MAGMITT [Concomitant]
     Dates: start: 20090814

REACTIONS (2)
  - DYSPNOEA EXERTIONAL [None]
  - PNEUMOMEDIASTINUM [None]
